FAERS Safety Report 21044686 (Version 3)
Quarter: 2023Q2

REPORT INFORMATION
  Report Type: Other
  Country: US (occurrence: US)
  Receive Date: 20220705
  Receipt Date: 20230421
  Transmission Date: 20230722
  Serious: Yes (Other)
  Sender: FDA-Public Use
  Company Number: US-GBT-013700

PATIENT
  Sex: Male

DRUGS (2)
  1. OXBRYTA [Suspect]
     Active Substance: VOXELOTOR
     Indication: Sickle cell disease
     Route: 048
     Dates: start: 2021
  2. OXBRYTA [Suspect]
     Active Substance: VOXELOTOR
     Indication: Sickle cell disease
     Route: 048

REACTIONS (4)
  - Pseudomonas infection [Not Recovered/Not Resolved]
  - Headache [Unknown]
  - Skin ulcer [Recovering/Resolving]
  - Off label use [Unknown]
